FAERS Safety Report 12015143 (Version 1)
Quarter: 2016Q1

REPORT INFORMATION
  Report Type: Spontaneous
  Country: US (occurrence: US)
  Receive Date: 20160205
  Receipt Date: 20160205
  Transmission Date: 20160526
  Serious: No
  Sender: FDA-Public Use
  Company Number: US-AMGEN-USASP2015023387

PATIENT
  Sex: Female

DRUGS (4)
  1. PERJETA [Suspect]
     Active Substance: PERTUZUMAB
     Indication: BREAST CANCER
     Dosage: UNK
     Route: 065
     Dates: start: 20140317
  2. NEULASTA [Suspect]
     Active Substance: PEGFILGRASTIM
     Indication: PRODUCT USED FOR UNKNOWN INDICATION
     Dosage: UNK
     Route: 065
  3. HERCEPTIN [Suspect]
     Active Substance: TRASTUZUMAB
     Indication: BREAST CANCER
     Dosage: UNK
     Route: 065
     Dates: start: 20140317
  4. TAXOTERE [Suspect]
     Active Substance: DOCETAXEL
     Indication: BREAST CANCER
     Dosage: UNK
     Route: 065
     Dates: start: 20140317

REACTIONS (7)
  - Diarrhoea [Not Recovered/Not Resolved]
  - Sleep disorder [Recovering/Resolving]
  - Pain in extremity [Unknown]
  - Hypersensitivity [Not Recovered/Not Resolved]
  - Bone pain [Not Recovered/Not Resolved]
  - Unevaluable event [Recovered/Resolved]
  - Nasopharyngitis [Not Recovered/Not Resolved]
